FAERS Safety Report 21602052 (Version 1)
Quarter: 2022Q4

REPORT INFORMATION
  Report Type: Spontaneous
  Country: US (occurrence: US)
  Receive Date: 20221116
  Receipt Date: 20221116
  Transmission Date: 20230112
  Serious: No
  Sender: FDA-Public Use
  Company Number: US-MAYNE PHARMA-2022MYN001109

PATIENT
  Age: 83 Year
  Sex: Female

DRUGS (2)
  1. AMIODARONE HYDROCHLORIDE [Suspect]
     Active Substance: AMIODARONE HYDROCHLORIDE
     Indication: Arrhythmia
     Dosage: 200MG,  UNK
     Route: 048
     Dates: start: 20220111
  2. PRADAXA [Concomitant]
     Active Substance: DABIGATRAN ETEXILATE MESYLATE
     Indication: Product used for unknown indication

REACTIONS (12)
  - Gait disturbance [Unknown]
  - Alopecia [Unknown]
  - Dizziness [Unknown]
  - Peripheral swelling [Unknown]
  - Photophobia [Unknown]
  - Insomnia [Unknown]
  - Tremor [Unknown]
  - Hypoaesthesia [Unknown]
  - Skin swelling [Unknown]
  - Arrhythmia [Unknown]
  - Memory impairment [Unknown]
  - Speech disorder [Unknown]

NARRATIVE: CASE EVENT DATE: 20220211
